FAERS Safety Report 24587035 (Version 3)
Quarter: 2024Q4

REPORT INFORMATION
  Report Type: Spontaneous
  Country: ES (occurrence: ES)
  Receive Date: 20241107
  Receipt Date: 20241220
  Transmission Date: 20250115
  Serious: Yes (Other)
  Sender: AMGEN
  Company Number: ES-ROCHE-10000109578

PATIENT
  Age: 24 Year
  Sex: Male
  Weight: 62.4 kg

DRUGS (11)
  1. BEVACIZUMAB [Suspect]
     Active Substance: BEVACIZUMAB
     Indication: Hepatocellular carcinoma
     Dosage: 924 MILLIGRAM, Q3WK (ON 07-OCT-2024, RECEIVED MOST RECENT DOSE OF BEVACIZUMAB (937.5 MG) PRIOR TO AE
     Route: 040
     Dates: start: 20240418
  2. ATEZOLIZUMAB [Suspect]
     Active Substance: ATEZOLIZUMAB
     Indication: Hepatocellular carcinoma
     Dosage: ON 07-OCT-2024, RECEIVED MOST RECENT DOSE OF ATEZOLIZUMAB (1200 MG) PRIOR TO AE.
     Route: 040
     Dates: start: 20240418
  3. TIRAGOLUMAB [Suspect]
     Active Substance: TIRAGOLUMAB
     Indication: Hepatocellular carcinoma
     Dosage: ON 07-OCT-2024, RECEIVED MOST RECENT DOSE OF BLINDED TIRAGOLUMAB PRIOR TO AE.
     Route: 040
     Dates: start: 20240418
  4. IRON [Concomitant]
     Active Substance: IRON
     Indication: Iron deficiency
     Dosage: 80 MILLIGRAM, QD
     Route: 048
     Dates: start: 20240821, end: 20240929
  5. FOLIC ACID [Concomitant]
     Active Substance: FOLIC ACID
     Indication: Thrombocytosis
     Dosage: 5 MILLIGRAM, QD
     Route: 048
     Dates: start: 20240819
  6. MOMETASONE FUROATE [Concomitant]
     Active Substance: MOMETASONE FUROATE
     Indication: Psoriasis
     Dosage: 1 OTHER
     Route: 061
     Dates: start: 20240808
  7. OMEPRAZOLE [Concomitant]
     Active Substance: OMEPRAZOLE
     Dosage: 20 MILLIGRAM, QD
     Route: 048
     Dates: start: 20241016, end: 20241113
  8. BETAMETHASONE [Concomitant]
     Active Substance: BETAMETHASONE
     Indication: Psoriasis
     Dosage: 0.5 OTHER
     Route: 061
     Dates: start: 20240808
  9. SALICYLIC ACID [Concomitant]
     Active Substance: SALICYLIC ACID
     Indication: Psoriasis
     Dosage: 20 OTHER
     Route: 061
     Dates: start: 20240808
  10. CLINDAMYCIN [Concomitant]
     Active Substance: CLINDAMYCIN
     Indication: Psoriasis
     Dosage: UNK UNK, AS NECESSARY
     Route: 061
     Dates: start: 20240808
  11. ACETAMINOPHEN [Concomitant]
     Active Substance: ACETAMINOPHEN
     Indication: Gingival bleeding
     Dosage: 1 GRAM, QD
     Route: 040
     Dates: start: 20241017, end: 20241017

REACTIONS (2)
  - Autoimmune myositis [Recovered/Resolved]
  - Off label use [Unknown]

NARRATIVE: CASE EVENT DATE: 20241015
